FAERS Safety Report 8854049 (Version 1)
Quarter: 2012Q4

REPORT INFORMATION
  Report Type: Spontaneous
  Country: US (occurrence: None)
  Receive Date: 20121019
  Receipt Date: 20121019
  Transmission Date: 20130627
  Serious: Yes (Life-Threatening, Hospitalization, Disabling, Congenital Anomaly)
  Sender: FDA-Public Use
  Company Number: None

PATIENT
  Age: 29 Year
  Sex: Female
  Weight: 61.69 kg

DRUGS (3)
  1. HALDOL DECONATE [Suspect]
     Indication: SCHIZOPHRENIA
     Route: 030
     Dates: start: 20120401
  2. HALDOL [Suspect]
     Indication: PSYCHOSIS
     Route: 048
     Dates: start: 20120413
  3. HALDOL [Suspect]
     Indication: BIPOLAR DISORDER
     Route: 048
     Dates: start: 20120413

REACTIONS (4)
  - Extrapyramidal disorder [None]
  - Blood pressure decreased [None]
  - Bradycardia [None]
  - Depression suicidal [None]
